FAERS Safety Report 20670720 (Version 1)
Quarter: 2022Q2

REPORT INFORMATION
  Report Type: Spontaneous
  Country: CN (occurrence: CN)
  Receive Date: 20220404
  Receipt Date: 20220404
  Transmission Date: 20220720
  Serious: Yes (Other)
  Sender: FDA-Public Use
  Company Number: CN-009507513-2203CHN009905

PATIENT
  Age: 68 Year
  Sex: Female
  Weight: 46 kg

DRUGS (2)
  1. JANUMET [Suspect]
     Active Substance: METFORMIN HYDROCHLORIDE\SITAGLIPTIN PHOSPHATE
     Dosage: 1 DOSAGE FORM, BID
     Route: 048
     Dates: start: 20220317, end: 20220320
  2. ASPIRIN [Suspect]
     Active Substance: ASPIRIN
     Indication: Platelet aggregation inhibition
     Dosage: 0.1 GRAM, QD
     Route: 048
     Dates: start: 20220312, end: 20220320

REACTIONS (9)
  - Pelvic inflammatory disease [Unknown]
  - Diabetes mellitus [Unknown]
  - Arrhythmia [Unknown]
  - Vomiting [Recovering/Resolving]
  - Nausea [Recovering/Resolving]
  - Abdominal distension [Recovering/Resolving]
  - Coronary artery disease [Unknown]
  - Eructation [Recovering/Resolving]
  - Gastrooesophageal reflux disease [Recovering/Resolving]

NARRATIVE: CASE EVENT DATE: 20220320
